FAERS Safety Report 13977451 (Version 3)
Quarter: 2018Q2

REPORT INFORMATION
  Report Type: Spontaneous
  Country: FR (occurrence: FR)
  Receive Date: 20170915
  Receipt Date: 20180426
  Transmission Date: 20180711
  Serious: Yes (Hospitalization, Other)
  Sender: FDA-Public Use
  Company Number: FR-PFIZER INC-2016SE44467

PATIENT
  Age: 19 Year
  Sex: Male

DRUGS (4)
  1. CISPLATINE [Concomitant]
     Active Substance: CISPLATIN
     Indication: OSTEOSARCOMA
     Dosage: UNK (FIVE CURES)
  2. MEROPENEM. [Suspect]
     Active Substance: MEROPENEM
     Dosage: UNK (HIGH DOSES)
  3. IFOSFAMIDE. [Concomitant]
     Active Substance: IFOSFAMIDE
     Indication: OSTEOSARCOMA
     Dosage: UNK (FIVE CURES)
  4. DOXORUBICINE /00330901/ [Concomitant]
     Active Substance: DOXORUBICIN
     Indication: OSTEOSARCOMA
     Dosage: UNK (FIVE CURES)

REACTIONS (2)
  - Overdose [Recovering/Resolving]
  - Toxic encephalopathy [Recovering/Resolving]
